FAERS Safety Report 11857388 (Version 1)
Quarter: 2015Q4

REPORT INFORMATION
  Report Type: Report from Study
  Country: IE (occurrence: IE)
  Receive Date: 20151221
  Receipt Date: 20151221
  Transmission Date: 20160305
  Serious: Yes (Hospitalization)
  Sender: FDA-Public Use
  Company Number: IE-TEVA-618761ISR

PATIENT
  Age: 53 Year
  Sex: Female

DRUGS (7)
  1. ELTROXIN [Suspect]
     Active Substance: LEVOTHYROXINE
     Dosage: 10 MILLIGRAM DAILY;
     Route: 048
  2. COPAXONE [Suspect]
     Active Substance: GLATIRAMER ACETATE
     Indication: RELAPSING-REMITTING MULTIPLE SCLEROSIS
     Route: 058
     Dates: start: 20150211
  3. TEVAQUEL [Suspect]
     Active Substance: QUETIAPINE
     Dosage: 400 MILLIGRAM DAILY;
     Route: 048
  4. EPILIM [Suspect]
     Active Substance: VALPROATE SODIUM
     Route: 065
  5. RIVOTRIL [Suspect]
     Active Substance: CLONAZEPAM
     Dosage: HALF A TABLET GIVEN
     Route: 048
  6. DESUNIN [Suspect]
     Active Substance: CHOLECALCIFEROL
     Dosage: 200 MICROGRAM DAILY; TREATMENT GIVEN AT NIGHT
     Route: 048
  7. LORAZEPAM. [Suspect]
     Active Substance: LORAZEPAM
     Dosage: 2400 IU (INTERNATIONAL UNIT) DAILY;
     Route: 048

REACTIONS (2)
  - Drug intolerance [Recovering/Resolving]
  - Malaise [Recovering/Resolving]

NARRATIVE: CASE EVENT DATE: 20151029
